FAERS Safety Report 6649153-5 (Version None)
Quarter: 2010Q1

REPORT INFORMATION
  Report Type: 
  Country: None (occurrence: None)
  Receive Date: 20100324
  Receipt Date: 20100322
  Transmission Date: 20100710
  Serious: Yes (Other)
  Sender: FDA-Public Use
  Company Number: A0847927A

PATIENT
  Sex: Female
  Weight: 61.8 kg

DRUGS (5)
  1. TYKERB [Suspect]
     Dosage: 1250MG PER DAY
     Route: 048
     Dates: start: 20091123
  2. XELODA [Concomitant]
     Dosage: 1650MG TWICE PER DAY
     Route: 048
     Dates: start: 20091123
  3. MAXERAN [Concomitant]
     Route: 065
  4. ETIDRONATE DISODIUM [Concomitant]
     Indication: OSTEOPOROSIS
     Route: 048
     Dates: end: 20091123
  5. PAMIDRONATE DISODIUM [Concomitant]
     Dosage: 90MG SEE DOSAGE TEXT
     Route: 042
     Dates: start: 20091123

REACTIONS (6)
  - DIARRHOEA [None]
  - DRY SKIN [None]
  - FATIGUE [None]
  - NAUSEA [None]
  - PALMAR-PLANTAR ERYTHRODYSAESTHESIA SYNDROME [None]
  - PARAESTHESIA [None]
